FAERS Safety Report 10182477 (Version 2)
Quarter: 2014Q2

REPORT INFORMATION
  Report Type: Report from Study
  Country: CN (occurrence: CN)
  Receive Date: 20140520
  Receipt Date: 20140520
  Transmission Date: 20141212
  Serious: Yes (Hospitalization, Disabling)
  Sender: FDA-Public Use
  Company Number: CN-JNJFOC-20110908549

PATIENT
  Age: 52 Year
  Sex: Male
  Weight: 65 kg

DRUGS (7)
  1. GOLIMUMAB [Suspect]
     Indication: RHEUMATOID ARTHRITIS
     Route: 058
     Dates: start: 20110113
  2. GOLIMUMAB [Suspect]
     Indication: RHEUMATOID ARTHRITIS
     Route: 058
     Dates: start: 20110826
  3. MELOXICAM [Concomitant]
     Indication: RHEUMATOID ARTHRITIS
     Route: 048
     Dates: start: 200905, end: 20110910
  4. FOLIC ACID [Concomitant]
     Route: 048
     Dates: start: 200905, end: 20110910
  5. RANITIDINE [Concomitant]
     Indication: GASTROINTESTINAL DISORDER THERAPY
     Route: 048
     Dates: start: 200905, end: 20110910
  6. ISONIAZID [Concomitant]
     Indication: LATENT TUBERCULOSIS
     Route: 048
     Dates: start: 20110113, end: 20110910
  7. METHOTREXATE [Concomitant]
     Indication: RHEUMATOID ARTHRITIS
     Route: 048
     Dates: end: 20110910

REACTIONS (1)
  - Cerebral haemorrhage [Recovered/Resolved]
